FAERS Safety Report 17705745 (Version 1)
Quarter: 2020Q2

REPORT INFORMATION
  Report Type: Spontaneous
  Country: CN (occurrence: CN)
  Receive Date: 20200424
  Receipt Date: 20200424
  Transmission Date: 20200714
  Serious: Yes (Other)
  Sender: FDA-Public Use
  Company Number: CN-PFIZER INC-2020163921

PATIENT
  Age: 53 Year
  Sex: Female
  Weight: 55 kg

DRUGS (5)
  1. DIFLUCAN [Suspect]
     Active Substance: FLUCONAZOLE
     Indication: SKIN ULCER
     Dosage: 200 MG, 1X/DAY
     Route: 048
     Dates: start: 20200331, end: 20200410
  2. COMPOUND AMINO ACID INJECTION (18 AA- II) [Concomitant]
     Indication: NUTRITIONAL SUPPLEMENTATION
     Dosage: 500 ML, 1X/DAY
     Route: 041
     Dates: start: 20200401, end: 20200421
  3. LIPOVENOES [GLYCEROL;GLYCINE MAX SEED OIL;PHOSPHOLIPIDS EGG] [Concomitant]
     Indication: NUTRITIONAL SUPPLEMENTATION
     Dosage: 250 ML, 1X/DAY
     Route: 041
     Dates: start: 20200401, end: 20200421
  4. SULPERAZON [Suspect]
     Active Substance: CEFOPERAZONE SODIUM\SULBACTAM SODIUM
     Indication: SKIN ULCER
     Dosage: 3 G, 2X/DAY
     Route: 041
     Dates: start: 20200331, end: 20200410
  5. AMIKACIN. [Concomitant]
     Active Substance: AMIKACIN
     Indication: SKIN ULCER
     Dosage: 400 MG, 1X/DAY
     Route: 041
     Dates: start: 20200331, end: 20200408

REACTIONS (6)
  - Aspartate aminotransferase increased [Recovering/Resolving]
  - Hepatic function abnormal [Recovering/Resolving]
  - Off label use [Unknown]
  - Alanine aminotransferase increased [Recovering/Resolving]
  - Gamma-glutamyltransferase increased [Recovering/Resolving]
  - Product use in unapproved indication [Unknown]

NARRATIVE: CASE EVENT DATE: 20200331
